FAERS Safety Report 11105782 (Version 1)
Quarter: 2015Q2

REPORT INFORMATION
  Report Type: Report from Study
  Country: CA (occurrence: CA)
  Receive Date: 20150512
  Receipt Date: 20150512
  Transmission Date: 20150821
  Serious: Yes (Other)
  Sender: FDA-Public Use
  Company Number: CA-AMGEN-CANSL2015044251

PATIENT
  Age: 61 Year
  Sex: Male

DRUGS (2)
  1. NEUPOGEN [Suspect]
     Active Substance: FILGRASTIM
     Indication: NEUTROPENIA
     Dosage: 300 MCG, OD X 7 DAYS POST CHEMO
     Route: 065
     Dates: start: 201206, end: 201206
  2. METFORMIN [Concomitant]
     Active Substance: METFORMIN HYDROCHLORIDE
     Indication: DIABETES MELLITUS
     Dosage: UNK

REACTIONS (9)
  - Hyperhidrosis [Unknown]
  - Mobility decreased [Unknown]
  - White blood cell count abnormal [Unknown]
  - Paralysis [Unknown]
  - Abasia [Unknown]
  - Pain [Unknown]
  - Platelet count abnormal [Unknown]
  - Pyrexia [Unknown]
  - Hypertension [Unknown]

NARRATIVE: CASE EVENT DATE: 201206
